FAERS Safety Report 5777553-4 (Version None)
Quarter: 2008Q2

REPORT INFORMATION
  Report Type: 
  Country: None (occurrence: None)
  Receive Date: 20080616
  Receipt Date: 20080604
  Transmission Date: 20081010
  Serious: Yes (Other)
  Sender: FDA-Public Use
  Company Number: FEI2008-1064

PATIENT
  Age: 34 Year
  Sex: Female
  Weight: 86.1834 kg

DRUGS (2)
  1. PARAGARD T 380A [Suspect]
     Indication: CONTRACEPTION
     Dosage: INTA-UTERINE
     Route: 015
     Dates: start: 20071109, end: 20080531
  2. HYDROCHLOROTHIAZIDE [Concomitant]

REACTIONS (5)
  - ABDOMINAL PAIN LOWER [None]
  - CHOLELITHIASIS [None]
  - CONDITION AGGRAVATED [None]
  - NAUSEA [None]
  - VOMITING [None]
